FAERS Safety Report 20388785 (Version 2)
Quarter: 2022Q3

REPORT INFORMATION
  Report Type: Report from Study
  Country: US (occurrence: US)
  Receive Date: 20220128
  Receipt Date: 20220911
  Transmission Date: 20221027
  Serious: No
  Sender: FDA-Public Use
  Company Number: US-SA-SAC20220125000361

PATIENT
  Age: 76 Year
  Sex: Female

DRUGS (9)
  1. DUPILUMAB [Suspect]
     Active Substance: DUPILUMAB
     Indication: Dermatitis atopic
     Dosage: 600 MG, 1X
     Route: 058
     Dates: start: 20170731, end: 20170731
  2. DUPILUMAB [Suspect]
     Active Substance: DUPILUMAB
     Dosage: 300 MG, QOW
     Route: 058
     Dates: end: 2022
  3. HYDROCHLOROTHIAZIDE [Concomitant]
     Active Substance: HYDROCHLOROTHIAZIDE
  4. LOSARTAN [Concomitant]
     Active Substance: LOSARTAN
  5. CLONAZEPAM [Concomitant]
     Active Substance: CLONAZEPAM
  6. GENTAMICIN SULFATE [Concomitant]
     Active Substance: GENTAMICIN SULFATE
  7. FLUTICASONE [Concomitant]
     Active Substance: FLUTICASONE
  8. BUDESONIDE\FORMOTEROL\GLYCOPYRRONIUM [Concomitant]
     Active Substance: BUDESONIDE\FORMOTEROL\GLYCOPYRRONIUM
  9. PROAIR HFA [Concomitant]
     Active Substance: ALBUTEROL SULFATE

REACTIONS (7)
  - Eye infection [Unknown]
  - Chapped lips [Unknown]
  - Chapped lips [Unknown]
  - Visual impairment [Unknown]
  - Eye disorder [Unknown]
  - Conjunctivitis [Unknown]
  - Oral herpes [Unknown]

NARRATIVE: CASE EVENT DATE: 20220101
